FAERS Safety Report 18089349 (Version 2)
Quarter: 2020Q4

REPORT INFORMATION
  Report Type: Spontaneous
  Country: CZ (occurrence: CZ)
  Receive Date: 20200730
  Receipt Date: 20201005
  Transmission Date: 20210113
  Serious: Yes (Life-Threatening, Hospitalization, Other)
  Sender: FDA-Public Use
  Company Number: CZ-LUPIN PHARMACEUTICALS INC.-2020-03807

PATIENT
  Age: 74 Year
  Sex: Male

DRUGS (12)
  1. ROSUVASTATIN. [Suspect]
     Active Substance: ROSUVASTATIN
     Indication: PRODUCT USED FOR UNKNOWN INDICATION
     Dosage: UNK UNK, QD, MISTAKENLY CO-ADMINISTERED 3 ROSUVASTATIN FORMULATIONS WITH DIFFERENT BRAND NAMES IN A
     Route: 065
  2. ROSUMOP [Interacting]
     Active Substance: ROSUVASTATIN CALCIUM
     Indication: PRODUCT USED FOR UNKNOWN INDICATION
     Dosage: UNK UNK, QD
     Route: 065
  3. FINASTERIDE. [Concomitant]
     Active Substance: FINASTERIDE
     Indication: PRODUCT USED FOR UNKNOWN INDICATION
     Dosage: 5 MILLIGRAM, QD
     Route: 065
  4. INSULIN LISPRO [Concomitant]
     Active Substance: INSULIN LISPRO
     Indication: PRODUCT USED FOR UNKNOWN INDICATION
     Dosage: 42 INTERNATIONAL UNIT, QD
     Route: 065
  5. ROSUCARD [Interacting]
     Active Substance: ROSUVASTATIN CALCIUM
     Indication: PRODUCT USED FOR UNKNOWN INDICATION
     Dosage: UNK UNK, QD, MISTAKENLY CO-ADMINISTERED 3 ROSUVASTATIN FORMULATIONS WITH DIFFERENT BRAND NAMES IN A
     Route: 065
  6. INSULIN GLARGINE [Concomitant]
     Active Substance: INSULIN GLARGINE
     Indication: PRODUCT USED FOR UNKNOWN INDICATION
     Dosage: 44 INTERNATIONAL UNIT, QD
     Route: 065
  7. TAMSULOSIN [Concomitant]
     Active Substance: TAMSULOSIN
     Indication: PRODUCT USED FOR UNKNOWN INDICATION
     Dosage: 0.4 MILLIGRAM, QD
     Route: 065
  8. SOLIFENACIN [Concomitant]
     Active Substance: SOLIFENACIN
     Indication: PRODUCT USED FOR UNKNOWN INDICATION
     Dosage: 10 MILLIGRAM, QD
     Route: 065
  9. SOLIFENACIN [Concomitant]
     Active Substance: SOLIFENACIN
     Dosage: 5 MILLIGRAM, QD
     Route: 065
  10. RILMENIDINE [Concomitant]
     Active Substance: RILMENIDINE
     Indication: PRODUCT USED FOR UNKNOWN INDICATION
     Dosage: 1 MILLIGRAM, QD
     Route: 065
  11. ROSUVASTATIN. [Interacting]
     Active Substance: ROSUVASTATIN
     Dosage: 40 MILLIGRAM
     Route: 065
  12. WARFARIN [Interacting]
     Active Substance: WARFARIN
     Indication: PRODUCT USED FOR UNKNOWN INDICATION
     Dosage: 3 MILLIGRAM, QD
     Route: 065

REACTIONS (12)
  - Acute kidney injury [Recovering/Resolving]
  - Bedridden [Recovering/Resolving]
  - Product name confusion [Unknown]
  - Product administration error [Unknown]
  - International normalised ratio increased [Recovering/Resolving]
  - Contraindicated product administered [Unknown]
  - Rhabdomyolysis [Recovering/Resolving]
  - Toxicity to various agents [Unknown]
  - Drug clearance decreased [Recovering/Resolving]
  - Constipation [Unknown]
  - Overdose [Unknown]
  - Drug interaction [Unknown]
